FAERS Safety Report 8576789-7 (Version None)
Quarter: 2012Q3

REPORT INFORMATION
  Report Type: 
  Country: None (occurrence: None)
  Receive Date: 20120807
  Receipt Date: 20120806
  Transmission Date: 20120928
  Serious: Yes (Other)
  Sender: FDA-Public Use
  Company Number: US-ROCHE-1064997

PATIENT
  Sex: Male
  Weight: 81.72 kg

DRUGS (2)
  1. ACCUTANE [Suspect]
     Dates: start: 19980224, end: 19980724
  2. ACCUTANE [Suspect]
     Indication: ACNE
     Dates: start: 19980224, end: 19980325

REACTIONS (4)
  - COLITIS ULCERATIVE [None]
  - INFLAMMATORY BOWEL DISEASE [None]
  - PAIN [None]
  - IRRITABLE BOWEL SYNDROME [None]
